FAERS Safety Report 6087054-4 (Version None)
Quarter: 2009Q1

REPORT INFORMATION
  Report Type: 
  Country: None (occurrence: None)
  Receive Date: 20090223
  Receipt Date: 20090210
  Transmission Date: 20090719
  Serious: Yes (Other)
  Sender: FDA-Public Use
  Company Number: PHHY2008JP14815

PATIENT
  Sex: Male
  Weight: 50 kg

DRUGS (14)
  1. EXJADE [Suspect]
     Indication: IRON OVERLOAD
     Dosage: 125 MG/DAY
     Route: 048
     Dates: start: 20080626, end: 20080702
  2. EXJADE [Suspect]
     Dosage: 250 MG/DAY
     Route: 048
     Dates: start: 20080703, end: 20080709
  3. EXJADE [Suspect]
     Dosage: 375 MG/DAY
     Route: 048
     Dates: start: 20080710, end: 20080716
  4. EXJADE [Suspect]
     Dosage: 125 MG/DAY
     Route: 048
     Dates: start: 20080911, end: 20081008
  5. CYANOCOBALAMIN [Concomitant]
     Indication: IRON OVERLOAD
     Dosage: 1500 UG, UNK
     Route: 048
     Dates: start: 20080626
  6. CYANOCOBALAMIN [Concomitant]
     Dosage: 1500 UG, UNK
     Dates: end: 20081008
  7. KREMEZIN [Concomitant]
     Indication: IRON OVERLOAD
     Dosage: 6 G, UNK
     Route: 048
     Dates: start: 20080626
  8. KREMEZIN [Concomitant]
     Dosage: 6 G, UNK
     Route: 048
     Dates: end: 20081008
  9. PRIMOBOLAN [Concomitant]
     Indication: IRON OVERLOAD
     Dosage: 10 MG, UNK
     Route: 048
     Dates: start: 20080911, end: 20081008
  10. ALFAROL [Concomitant]
     Indication: IRON OVERLOAD
     Dosage: 0.5 UG, UNK
     Route: 048
     Dates: start: 20080911, end: 20081008
  11. FLUITRAN [Concomitant]
     Indication: IRON OVERLOAD
     Dosage: 1 UG, UNK
     Route: 048
     Dates: start: 20080911, end: 20081008
  12. MAGMITT [Concomitant]
     Indication: IRON OVERLOAD
     Dosage: 1980 MG, UNK
     Route: 048
     Dates: start: 20080911, end: 20080914
  13. POSTERISAN [Concomitant]
     Indication: IRON OVERLOAD
     Dosage: 4 G, UNK
     Route: 061
     Dates: start: 20080911, end: 20081008
  14. DESFERAL [Concomitant]
     Route: 042

REACTIONS (11)
  - ALANINE AMINOTRANSFERASE INCREASED [None]
  - ANOREXIA [None]
  - ASCITES [None]
  - ASPARTATE AMINOTRANSFERASE INCREASED [None]
  - BLOOD BILIRUBIN INCREASED [None]
  - COLOUR BLINDNESS [None]
  - ECZEMA [None]
  - HEPATIC FUNCTION ABNORMAL [None]
  - NAUSEA [None]
  - OEDEMA [None]
  - WEIGHT INCREASED [None]
